FAERS Safety Report 9608165 (Version 1)
Quarter: 2013Q4

REPORT INFORMATION
  Report Type: Spontaneous
  Country: US (occurrence: None)
  Receive Date: 20131007
  Receipt Date: 20131007
  Transmission Date: 20140711
  Serious: Yes (Death)
  Sender: FDA-Public Use
  Company Number: None

PATIENT
  Age: 30 Year
  Sex: Female
  Weight: 57 kg

DRUGS (2)
  1. AVELOX [Suspect]
     Indication: DRUG THERAPY
     Dosage: 1 TABLET
     Dates: start: 20130914
  2. IBUPROFEN [Concomitant]

REACTIONS (9)
  - Vomiting [None]
  - Nausea [None]
  - Abdominal pain [None]
  - Unresponsive to stimuli [None]
  - Brain oedema [None]
  - Brain death [None]
  - Brain herniation [None]
  - Hepatitis B virus test positive [None]
  - Acute hepatic failure [None]
